FAERS Safety Report 5194061-2 (Version None)
Quarter: 2006Q4

REPORT INFORMATION
  Report Type: 
  Country: None (occurrence: None)
  Receive Date: 20061228
  Receipt Date: 20061218
  Transmission Date: 20070319
  Serious: Yes (Death, Hospitalization)
  Sender: FDA-Public Use
  Company Number: ALZ-7883

PATIENT
  Sex: Female

DRUGS (8)
  1. DOXORUBICIN HCL [Suspect]
     Indication: OVARIAN CANCER
     Dates: start: 20000919
  2. PARAPLATIN [Suspect]
     Indication: OVARIAN CANCER
     Dates: start: 20000919
  3. DAFALGAN [Concomitant]
  4. OMEPRAZOLE [Concomitant]
  5. LEXOMIL [Concomitant]
  6. PRIMPERAN TAB [Concomitant]
  7. ACETAMINOPHEN W/ PROPOXYPHENE HCL [Concomitant]
  8. ZOLPIDEM TARTRATE [Concomitant]

REACTIONS (4)
  - APLASTIC ANAEMIA [None]
  - HAEMORRHAGE [None]
  - INTESTINAL OBSTRUCTION [None]
  - THROMBOCYTOPENIA [None]
